FAERS Safety Report 8444052 (Version 3)
Quarter: 2013Q4

REPORT INFORMATION
  Report Type: Spontaneous
  Country: GB (occurrence: GB)
  Receive Date: 20120306
  Receipt Date: 20131108
  Transmission Date: 20140711
  Serious: Yes (Disabling)
  Sender: FDA-Public Use
  Company Number: GB-009507513-1203GBR00016

PATIENT
  Age: 72 Year
  Sex: Female
  Weight: 82.56 kg

DRUGS (13)
  1. ZOCOR [Suspect]
     Route: 048
     Dates: start: 20111027
  2. ALENDRONATE SODIUM [Concomitant]
     Route: 048
     Dates: start: 20111107
  3. BECLOMETASON CT [Concomitant]
     Dates: start: 20111107
  4. BENDROFLUMETHIAZIDE [Concomitant]
     Dates: start: 20111107
  5. CLENIL MODULITE [Concomitant]
     Dates: start: 20120209
  6. FOLIC ACID [Concomitant]
     Dates: start: 20111107
  7. HYPROMELLOSE [Concomitant]
     Dates: start: 20111107
  8. LANSOPRAZOLE [Concomitant]
     Dates: start: 20111229
  9. ATREXEL [Concomitant]
     Dates: start: 20111107
  10. PREDNISOLONE [Concomitant]
     Dates: start: 20111019
  11. VALSARTAN [Concomitant]
     Dates: start: 20111107
  12. VENTOLIN (ALBUTEROL SULFATE) [Concomitant]
     Dates: start: 20111107
  13. VOLTAROL [Concomitant]
     Dates: start: 20111107

REACTIONS (1)
  - Pain [Recovered/Resolved]
